FAERS Safety Report 5505486-7 (Version None)
Quarter: 2007Q4

REPORT INFORMATION
  Report Type: 
  Country: None (occurrence: None)
  Receive Date: 20071102
  Receipt Date: 20071023
  Transmission Date: 20080405
  Serious: Yes (Life-Threatening)
  Sender: FDA-Public Use
  Company Number: GB-ABBOTT-06P-167-0330675-00

PATIENT
  Sex: Female
  Weight: 82 kg

DRUGS (11)
  1. HUMIRA [Suspect]
     Indication: RHEUMATOID ARTHRITIS
     Route: 058
     Dates: start: 20060123, end: 20060324
  2. FOLIC ACID [Concomitant]
     Indication: VITAMIN SUPPLEMENTATION
     Route: 048
     Dates: start: 20040601
  3. AMITRIPTYLINE HCL [Concomitant]
     Indication: SLEEP DISORDER
     Dates: start: 20040901
  4. AMITRIPTYLINE HCL [Concomitant]
     Indication: ANALGESIA
  5. AMITRIPTYLINE HCL [Concomitant]
     Indication: MINERAL SUPPLEMENTATION
  6. CALCIUM CARBONATE [Concomitant]
     Indication: PROPHYLAXIS
     Dates: start: 20040101
  7. CALCIUM CARBONATE [Concomitant]
     Indication: MINERAL SUPPLEMENTATION
  8. ACETAMINOPHEN [Concomitant]
     Indication: PAIN
  9. SULFASALAZINE [Concomitant]
     Indication: RHEUMATOID ARTHRITIS
     Dates: start: 20040101
  10. SULFASALAZINE [Concomitant]
     Dates: start: 20040101
  11. ETANERCEPT [Concomitant]
     Indication: RHEUMATOID ARTHRITIS
     Dates: start: 20050531

REACTIONS (3)
  - FEAR [None]
  - SWOLLEN TONGUE [None]
  - TINNITUS [None]
